FAERS Safety Report 7334133-7 (Version None)
Quarter: 2011Q1

REPORT INFORMATION
  Report Type: 
  Country: None (occurrence: None)
  Receive Date: 20110302
  Receipt Date: 20110302
  Transmission Date: 20110831
  Serious: Yes (Other)
  Sender: FDA-Public Use
  Company Number: None

PATIENT
  Age: 52 Year
  Sex: Female
  Weight: 54.4316 kg

DRUGS (1)
  1. CIPROFLOXACIN [Suspect]
     Indication: BARTONELLOSIS
     Dosage: 500 MG BID PO
     Route: 048
     Dates: start: 20100210, end: 20100322

REACTIONS (1)
  - TENDON RUPTURE [None]
